FAERS Safety Report 9602230 (Version 2)
Quarter: 2013Q4

REPORT INFORMATION
  Report Type: Spontaneous
  Country: US (occurrence: US)
  Receive Date: 20131007
  Receipt Date: 20131018
  Transmission Date: 20140711
  Serious: No
  Sender: FDA-Public Use
  Company Number: US-RB-058507-13

PATIENT
  Age: 80 Year
  Sex: Male

DRUGS (2)
  1. MUCINEX DM MAXIMUM STRENGTH [Suspect]
     Indication: PRODUCT USED FOR UNKNOWN INDICATION
     Dosage: TOOK ONE TABLET ON 01-OCT-2013. LAST USED PRODUCT ON 01-OCT-2013
     Route: 048
     Dates: start: 20131001
  2. MUCINEX FAST-MAX SEVERE CONGESTION AND COUGH [Suspect]
     Indication: PRODUCT USED FOR UNKNOWN INDICATION
     Dosage: TOOK 1 DOSE ON 01/OCT/2013. LAST USED PRODUCT ON 01/OCT/2013.
     Route: 048
     Dates: start: 20131001

REACTIONS (2)
  - Diarrhoea [Recovered/Resolved]
  - Dizziness [Recovered/Resolved]
